FAERS Safety Report 4386884-4 (Version None)
Quarter: 2004Q2

REPORT INFORMATION
  Report Type: 
  Country: None (occurrence: None)
  Receive Date: 20040623
  Receipt Date: 20040608
  Transmission Date: 20050107
  Serious: Yes (Other)
  Sender: FDA-Public Use
  Company Number: US_0406103548

PATIENT
  Age: 64 Year
  Sex: Male
  Weight: 91 kg

DRUGS (16)
  1. XIGRIS [Suspect]
     Indication: SEPSIS
     Dates: start: 20040407, end: 20040411
  2. HEPARIN SODIUM [Suspect]
     Indication: DEEP VEIN THROMBOSIS
     Dates: start: 20040414, end: 20040101
  3. VANCOMYCIN [Concomitant]
  4. FERROUS SULFATE TAB [Concomitant]
  5. PANTOPRAZOLE [Concomitant]
  6. FUROSEMIDE [Concomitant]
  7. ACETAMINOPHEN [Concomitant]
  8. FENTANYL CITRATE [Concomitant]
  9. NOREPINEPHRINE BITARTRATE [Concomitant]
  10. AMIODARONE HCL [Concomitant]
  11. BISACODYL [Concomitant]
  12. CALCIUM CHLORIDE [Concomitant]
  13. MAGNESIUM SULFATE [Concomitant]
  14. POTASSIUM CHLORIDE [Concomitant]
  15. UNASYN (SYLTAMICILLIN) [Concomitant]
  16. PROCRIT (ERYTHROPOIETIN) [Concomitant]

REACTIONS (4)
  - ANAEMIA [None]
  - DEEP VEIN THROMBOSIS [None]
  - HEPATIC HAEMATOMA [None]
  - THROMBOCYTOPENIA [None]
